FAERS Safety Report 9156031 (Version 2)
Quarter: 2013Q2

REPORT INFORMATION
  Report Type: Report from Study
  Country: US (occurrence: US)
  Receive Date: 20130311
  Receipt Date: 20130621
  Transmission Date: 20140414
  Serious: Yes (Death, Other)
  Sender: FDA-Public Use
  Company Number: US-ROCHE-582027

PATIENT
  Sex: 0

DRUGS (20)
  1. MYCOPHENOLATE MOFETIL [Suspect]
     Indication: PROPHYLAXIS AGAINST TRANSPLANT REJECTION
     Route: 065
  2. MYCOPHENOLATE MOFETIL [Suspect]
     Route: 065
  3. METHYLPREDNISOLONE [Suspect]
     Indication: PROPHYLAXIS AGAINST TRANSPLANT REJECTION
     Route: 065
  4. METHYLPREDNISOLONE [Suspect]
     Route: 065
  5. METHYLPREDNISOLONE [Suspect]
     Route: 065
  6. METHYLPREDNISOLONE [Suspect]
     Route: 065
  7. PREDNISONE [Suspect]
     Indication: PROPHYLAXIS AGAINST TRANSPLANT REJECTION
     Route: 065
  8. PREDNISONE [Suspect]
     Route: 065
  9. PREDNISONE [Suspect]
     Route: 065
  10. PREDNISONE [Suspect]
     Route: 065
  11. PREDNISONE [Suspect]
     Route: 065
  12. PREDNISONE [Suspect]
     Route: 065
  13. PREDNISONE [Suspect]
     Route: 065
  14. PREDNISONE [Suspect]
     Route: 065
  15. PREDNISONE [Suspect]
     Route: 065
  16. PREDNISONE [Suspect]
     Route: 065
  17. PREDNISONE [Suspect]
     Route: 065
  18. TACROLIMUS [Suspect]
     Indication: PROPHYLAXIS AGAINST TRANSPLANT REJECTION
     Dosage: 0.15-0.2 MG/KG/DAY
     Route: 048
  19. TACROLIMUS [Suspect]
     Dosage: DOSE TITRATION TO TROUGH LEVELS OF 10 TO 20 NG/ML BY PTD 7 THROUGH PTD 90
     Route: 048
  20. TACROLIMUS [Suspect]
     Dosage: THEN FROM DAY 91 ONWARDS, TO TARGET TROUGH LEVELS OF  5 TO 15 NG/ML
     Route: 048

REACTIONS (7)
  - Infection [Fatal]
  - Death [Fatal]
  - Graft loss [Unknown]
  - Transplant rejection [Unknown]
  - Cytomegalovirus infection [Unknown]
  - Neutropenia [Unknown]
  - Leukopenia [Unknown]
